FAERS Safety Report 7357639-3 (Version None)
Quarter: 2011Q1

REPORT INFORMATION
  Report Type: 
  Country: None (occurrence: None)
  Receive Date: 20110317
  Receipt Date: 20110310
  Transmission Date: 20110831
  Serious: Yes (Hospitalization)
  Sender: FDA-Public Use
  Company Number: US-ELI_LILLY_AND_COMPANY-US200910004620

PATIENT
  Sex: Female

DRUGS (16)
  1. TYLENOL (CAPLET) [Concomitant]
  2. METHOTREXATE [Concomitant]
     Dosage: UNK, UNKNOWN
     Route: 065
  3. COREG [Concomitant]
     Dosage: 1 MG, DAILY (1/D)
  4. FORTEO [Suspect]
     Indication: OSTEOPOROSIS
     Dosage: 20 UG, DAILY (1/D)
     Dates: start: 20090925
  5. CYTOTEC [Concomitant]
  6. CELEBREX [Concomitant]
  7. FORTEO [Suspect]
     Dosage: 20 UG, DAILY (1/D)
     Dates: start: 20090101, end: 20091201
  8. ZOCOR [Concomitant]
  9. PROCARDIA [Concomitant]
  10. ASPIRIN [Concomitant]
     Dosage: UNK, DAILY (1/D)
  11. ATIVAN [Concomitant]
     Dosage: UNK, 2/D
  12. LASIX [Concomitant]
  13. VITAMIN D [Concomitant]
  14. COMBIVENT [Concomitant]
     Dosage: UNK, UNKNOWN
     Route: 065
  15. FORTEO [Suspect]
     Dosage: 20 UG, DAILY (1/D)
  16. PREDNISONE [Concomitant]
     Indication: WEIGHT INCREASED
     Dosage: 10 MG, UNKNOWN

REACTIONS (8)
  - CONSTIPATION [None]
  - PAIN IN EXTREMITY [None]
  - MALAISE [None]
  - ASTHENIA [None]
  - COMPUTERISED TOMOGRAM ABNORMAL [None]
  - INTESTINAL OBSTRUCTION [None]
  - PNEUMONIA [None]
  - NAUSEA [None]
